FAERS Safety Report 9157215 (Version 2)
Quarter: 2013Q2

REPORT INFORMATION
  Report Type: Spontaneous
  Country: US (occurrence: US)
  Receive Date: 20130312
  Receipt Date: 20130416
  Transmission Date: 20140414
  Serious: Yes (Life-Threatening, Congenital Anomaly, Other)
  Sender: FDA-Public Use
  Company Number: US-PFIZER INC-2013080474

PATIENT
  Sex: Male

DRUGS (8)
  1. ZOLOFT [Suspect]
     Indication: DEPRESSION
     Dosage: UNK
     Route: 064
     Dates: start: 201002, end: 201108
  2. PRENATAL VITAMINS [Concomitant]
     Dosage: UNK
     Route: 064
  3. FLUCONAZOLE [Concomitant]
     Dosage: UNK
     Route: 064
  4. AZITHROMYCIN [Concomitant]
     Dosage: UNK
     Route: 064
  5. CEPHALEXIN [Concomitant]
     Dosage: UNK
     Route: 064
  6. IBUPROFEN [Concomitant]
     Dosage: UNK
     Route: 064
  7. TRIAMCINOLONE [Concomitant]
     Dosage: UNK
     Route: 064
  8. HYDROCODONE [Concomitant]
     Dosage: UNK
     Route: 064

REACTIONS (3)
  - Maternal exposure during pregnancy [Unknown]
  - Cleft lip [Unknown]
  - Cleft palate [Unknown]
